FAERS Safety Report 8282481-9 (Version None)
Quarter: 2012Q2

REPORT INFORMATION
  Report Type: 
  Country: None (occurrence: None)
  Receive Date: 20120411
  Receipt Date: 20120328
  Transmission Date: 20120825
  Serious: Yes (Other)
  Sender: FDA-Public Use
  Company Number: US-1191471

PATIENT
  Age: 66 Year
  Sex: Female

DRUGS (3)
  1. PREDNISOLONE ACETATE [Suspect]
     Dosage: (EVERY 2 HOURS OPHTHALMIC)
     Route: 047
  2. CEFTAZIDIME [Suspect]
     Dosage: (50 MG/ML QID)
  3. TOBRAMYCIN [Suspect]
     Dosage: (14 MG/ML EVERY 30 MINUTES), (FOUR TIMES A DAY)

REACTIONS (10)
  - CORNEAL EPITHELIUM DEFECT [None]
  - HYPOPYON [None]
  - CORNEAL INFILTRATES [None]
  - CORNEAL THINNING [None]
  - ULCERATIVE KERATITIS [None]
  - KERATITIS [None]
  - IRITIS [None]
  - KERATITIS BACTERIAL [None]
  - CORNEAL OEDEMA [None]
  - PSEUDOMONAS TEST POSITIVE [None]
